FAERS Safety Report 19223865 (Version 7)
Quarter: 2021Q4

REPORT INFORMATION
  Report Type: Report from Study
  Country: US (occurrence: US)
  Receive Date: 20210506
  Receipt Date: 20211124
  Transmission Date: 20220303
  Serious: No
  Sender: FDA-Public Use
  Company Number: NVSC2021US099086

PATIENT
  Sex: Female

DRUGS (3)
  1. COSENTYX [Suspect]
     Active Substance: SECUKINUMAB
     Indication: Psoriatic arthropathy
     Dosage: 150 MG, QW
     Route: 058
  2. COSENTYX [Suspect]
     Active Substance: SECUKINUMAB
     Dosage: 300 MG, QW
     Route: 058
  3. COSENTYX [Suspect]
     Active Substance: SECUKINUMAB
     Dosage: 300 MG, QMO
     Route: 058

REACTIONS (18)
  - Pelvic pain [Unknown]
  - Tinea cruris [Unknown]
  - Pain [Unknown]
  - Pain in extremity [Unknown]
  - Sleep disorder [Unknown]
  - Mood swings [Unknown]
  - Anxiety [Unknown]
  - Depression [Unknown]
  - Memory impairment [Unknown]
  - Dermal cyst [Unknown]
  - Inflammation [Unknown]
  - Infected dermal cyst [Unknown]
  - Onychomadesis [Unknown]
  - Fungal infection [Unknown]
  - Pruritus [Unknown]
  - Psoriasis [Unknown]
  - Skin plaque [Unknown]
  - Therapeutic product effect incomplete [Unknown]
